FAERS Safety Report 11913257 (Version 4)
Quarter: 2016Q1

REPORT INFORMATION
  Report Type: Report from Study
  Country: CA (occurrence: CA)
  Receive Date: 20160113
  Receipt Date: 20160125
  Transmission Date: 20160526
  Serious: Yes (Death, Other)
  Sender: FDA-Public Use
  Company Number: CA-SA-2016SA005084

PATIENT
  Age: 62 Year
  Sex: Male

DRUGS (9)
  1. RIFAMPICIN/ISONIAZID [Suspect]
     Active Substance: ISONIAZID\RIFAMPIN
     Indication: TUBERCULOSIS LIVER
     Route: 065
  2. CYCLOPHOSPHAMIDE. [Suspect]
     Active Substance: CYCLOPHOSPHAMIDE
     Indication: LYMPHOMA
     Route: 042
  3. TRIMETHOPRIM/SULFAMETHOXAZOLE [Concomitant]
     Indication: PROPHYLAXIS
  4. PREDNISONE. [Suspect]
     Active Substance: PREDNISONE
     Indication: LYMPHOMA
     Route: 048
  5. VINCRISTINE [Suspect]
     Active Substance: VINCRISTINE
     Indication: LYMPHOMA
     Route: 042
  6. ALEMTUZUMAB [Suspect]
     Active Substance: ALEMTUZUMAB
     Indication: LYMPHOMA
     Route: 058
  7. ALEMTUZUMAB [Suspect]
     Active Substance: ALEMTUZUMAB
     Indication: LYMPHOMA
     Route: 058
  8. ADRIAMYCIN [Suspect]
     Active Substance: DOXORUBICIN HYDROCHLORIDE
     Indication: LYMPHOMA
     Route: 042
  9. FAMCICLOVIR. [Concomitant]
     Active Substance: FAMCICLOVIR
     Indication: PROPHYLAXIS

REACTIONS (6)
  - Pneumonitis [Unknown]
  - Hepatic failure [Fatal]
  - Drug intolerance [None]
  - Tuberculosis liver [Unknown]
  - Hepatitis [Unknown]
  - Toxicity to various agents [None]
